FAERS Safety Report 6456750-9 (Version None)
Quarter: 2009Q4

REPORT INFORMATION
  Report Type: 
  Country: None (occurrence: None)
  Receive Date: 20091124
  Receipt Date: 20091124
  Transmission Date: 20100525
  Serious: Yes (Hospitalization)
  Sender: FDA-Public Use
  Company Number: None

PATIENT
  Age: 20 Year
  Sex: Male
  Weight: 67.5 kg

DRUGS (1)
  1. PROPOFOL [Suspect]
     Indication: ANAESTHESIA PROCEDURE
     Dosage: 150 MG IV DRIP
     Route: 041
     Dates: start: 20091123, end: 20091123

REACTIONS (3)
  - CHILLS [None]
  - FEELING COLD [None]
  - POST PROCEDURAL DISCOMFORT [None]
